FAERS Safety Report 9413631 (Version 3)
Quarter: 2013Q3

REPORT INFORMATION
  Report Type: Spontaneous
  Country: NZ (occurrence: NZ)
  Receive Date: 20130722
  Receipt Date: 20130807
  Transmission Date: 20140515
  Serious: Yes (Other)
  Sender: FDA-Public Use
  Company Number: NZ-PFIZER INC-2013207931

PATIENT
  Sex: Male

DRUGS (1)
  1. XYNTHA [Suspect]
     Indication: PROPHYLAXIS
     Dosage: 1000 IU, 1X/DAY

REACTIONS (2)
  - Extravasation [Recovered/Resolved]
  - Syringe issue [Recovered/Resolved]
